FAERS Safety Report 6235852-6 (Version None)
Quarter: 2009Q2

REPORT INFORMATION
  Report Type: 
  Country: None (occurrence: None)
  Receive Date: 20090619
  Receipt Date: 20090609
  Transmission Date: 20091009
  Serious: Yes (Hospitalization, Other)
  Sender: FDA-Public Use
  Company Number: US-JNJFOC-20090402342

PATIENT
  Sex: Female
  Weight: 47.4 kg

DRUGS (18)
  1. INFLIXIMAB [Suspect]
     Route: 042
  2. INFLIXIMAB [Suspect]
     Route: 042
  3. INFLIXIMAB [Suspect]
     Route: 042
  4. INFLIXIMAB [Suspect]
     Route: 042
  5. INFLIXIMAB [Suspect]
     Dosage: RECEIVED INDUCTION DOSING AT WEEK 0, 2, AND 6 AND THEN MAINTENANCE OF EVERY 8 WEEKS
     Route: 042
  6. INFLIXIMAB [Suspect]
     Route: 042
  7. INFLIXIMAB [Suspect]
     Indication: CROHN'S DISEASE
     Route: 042
  8. ANTIBIOTICS [Concomitant]
     Indication: INFLAMMATORY BOWEL DISEASE
  9. ANTIBIOTICS [Concomitant]
     Indication: CROHN'S DISEASE
  10. PREDNISONE [Concomitant]
  11. HUMIRA [Concomitant]
     Dosage: LAST DOSE WAS CLOSE TO 28-APR-2008
  12. HUMIRA [Concomitant]
     Dosage: TAKEN AT BASELINE VISIT 1. RECEIVED A DOSE ON 21-APR-2008
  13. ANTIHISTAMINES [Concomitant]
     Indication: PREMEDICATION
  14. ACETAMINOPHEN [Concomitant]
     Indication: PREMEDICATION
  15. METRONIDAZOLE [Concomitant]
  16. CIPROFLOXACIN [Concomitant]
  17. POLYSACCHARIDE-IRON COMPLEX [Concomitant]
  18. PERIACTIN [Concomitant]

REACTIONS (4)
  - ABSCESS INTESTINAL [None]
  - LARGE INTESTINE PERFORATION [None]
  - MELANOCYTIC NAEVUS [None]
  - SMALL INTESTINAL OBSTRUCTION [None]
